FAERS Safety Report 8558797-5 (Version None)
Quarter: 2012Q3

REPORT INFORMATION
  Report Type: 
  Country: None (occurrence: None)
  Receive Date: 20120801
  Receipt Date: 20120720
  Transmission Date: 20120928
  Serious: Yes (Hospitalization)
  Sender: FDA-Public Use
  Company Number: BE-MSD-1206USA03831

PATIENT

DRUGS (9)
  1. METHYLPREDNISOLONE [Concomitant]
     Indication: VEIN DISORDER
     Dosage: 125 MG, QD
     Route: 048
     Dates: start: 20120106
  2. FOLIC ACID [Concomitant]
     Indication: VITAMIN SUPPLEMENTATION
     Dosage: 10 MG, QD
     Route: 048
     Dates: start: 20120515
  3. CASPOFUNGIN ACETATE [Suspect]
     Dosage: 50 MG, QD
     Route: 042
     Dates: start: 20120523, end: 20120525
  4. ZOVIRAX [Concomitant]
     Indication: PROPHYLAXIS
     Dosage: 900 MG, TID
     Route: 048
     Dates: start: 20120507
  5. PROMAGNOR [Concomitant]
     Indication: MINERAL SUPPLEMENTATION
     Dosage: UNK UNK, BID
     Route: 048
     Dates: start: 20120506, end: 20120618
  6. METHYLPREDNISOLONE [Concomitant]
     Dosage: 16 MG, QD
     Route: 048
     Dates: end: 20120629
  7. AVELOX [Concomitant]
     Indication: BRONCHOPNEUMONIA
     Dosage: 900 MG, QD
     Route: 048
     Dates: start: 20120515, end: 20120621
  8. PROGRAF [Concomitant]
     Indication: PROPHYLAXIS
     Dosage: UNK UNK, BID
     Route: 048
     Dates: start: 20120512
  9. OMEPRAZOLE [Concomitant]
     Indication: PROPHYLAXIS
     Dosage: 90 MG, QD
     Route: 048
     Dates: start: 20120515

REACTIONS (6)
  - DIARRHOEA [None]
  - DECREASED APPETITE [None]
  - NAUSEA [None]
  - BRONCHOPULMONARY ASPERGILLOSIS [None]
  - GRAFT VERSUS HOST DISEASE [None]
  - VOMITING [None]
